FAERS Safety Report 15720136 (Version 2)
Quarter: 2019Q1

REPORT INFORMATION
  Report Type: Spontaneous
  Country: US (occurrence: US)
  Receive Date: 20181213
  Receipt Date: 20190122
  Transmission Date: 20190417
  Serious: No
  Sender: FDA-Public Use
  Company Number: US-BAUSCH-BL-2018-033628

PATIENT
  Age: 63 Year
  Sex: Female

DRUGS (1)
  1. OFLOXACIN OTIC [Suspect]
     Active Substance: OFLOXACIN
     Indication: PRODUCT USED FOR UNKNOWN INDICATION
     Dosage: FOR 10 DAYS
     Route: 001
     Dates: start: 201811, end: 201811

REACTIONS (2)
  - Ear discomfort [Unknown]
  - Product container seal issue [Recovered/Resolved]

NARRATIVE: CASE EVENT DATE: 201811
